FAERS Safety Report 11727420 (Version 1)
Quarter: 2015Q4

REPORT INFORMATION
  Report Type: Spontaneous
  Country: US (occurrence: US)
  Receive Date: 20151112
  Receipt Date: 20151112
  Transmission Date: 20160304
  Serious: Yes (Life-Threatening, Hospitalization)
  Sender: FDA-Public Use
  Company Number: US-ELI_LILLY_AND_COMPANY-US201511000416

PATIENT
  Age: 48 Year
  Sex: Male

DRUGS (6)
  1. LETAIRIS [Suspect]
     Active Substance: AMBRISENTAN
     Indication: PULMONARY HYPERTENSION
     Dosage: 10 MG, UNKNOWN
     Route: 065
     Dates: start: 20150706
  2. LETAIRIS [Suspect]
     Active Substance: AMBRISENTAN
     Indication: SLEEP APNOEA SYNDROME
  3. ADCIRCA [Suspect]
     Active Substance: TADALAFIL
     Indication: PRODUCT USED FOR UNKNOWN INDICATION
     Dosage: UNK, UNKNOWN
     Route: 065
  4. OXYGEN. [Concomitant]
     Active Substance: OXYGEN
  5. METOPROLOL [Concomitant]
     Active Substance: METOPROLOL
  6. LETAIRIS [Suspect]
     Active Substance: AMBRISENTAN
     Indication: OXYGEN CONSUMPTION

REACTIONS (5)
  - Cellulitis [Unknown]
  - Shock [Unknown]
  - Pneumonia [Unknown]
  - Pneumonia [Unknown]
  - Respiratory arrest [Unknown]

NARRATIVE: CASE EVENT DATE: 201507
